FAERS Safety Report 5536934-4 (Version None)
Quarter: 2007Q4

REPORT INFORMATION
  Report Type: 
  Country: None (occurrence: None)
  Receive Date: 20071207
  Receipt Date: 20071130
  Transmission Date: 20080405
  Serious: Yes (Other)
  Sender: FDA-Public Use
  Company Number: PHBS2007FI20243

PATIENT
  Sex: Female

DRUGS (1)
  1. ZOMETA [Suspect]
     Dosage: 4MG, TWICE A YEAR
     Dates: end: 20040101

REACTIONS (2)
  - APHTHOUS STOMATITIS [None]
  - OSTEONECROSIS [None]
